FAERS Safety Report 9714266 (Version 1)
Quarter: 2013Q4

REPORT INFORMATION
  Report Type: Spontaneous
  Country: US (occurrence: None)
  Receive Date: 20131122
  Receipt Date: 20131122
  Transmission Date: 20140711
  Serious: Yes (Death)
  Sender: FDA-Public Use
  Company Number: 2013P1021147

PATIENT
  Sex: 0

DRUGS (3)
  1. ALPRAZOLAM [Suspect]
  2. OXYCODONE [Suspect]
  3. CITALOPRAM [Suspect]

REACTIONS (2)
  - Accidental death [None]
  - Overdose [None]
